FAERS Safety Report 4303209-0 (Version None)
Quarter: 2004Q1

REPORT INFORMATION
  Report Type: 
  Country: None (occurrence: None)
  Receive Date: 20040223
  Receipt Date: 20040211
  Transmission Date: 20041129
  Serious: Yes (Other)
  Sender: FDA-Public Use
  Company Number: US-JNJFOC-20040203074

PATIENT
  Sex: Female

DRUGS (1)
  1. RISPERDAL CONSTA [Suspect]
     Dosage: INTRA-MUSCULAR
     Route: 030

REACTIONS (2)
  - INJECTION SITE REACTION [None]
  - NECROTISING FASCIITIS [None]
